FAERS Safety Report 20922269 (Version 2)
Quarter: 2022Q2

REPORT INFORMATION
  Report Type: Spontaneous
  Country: US (occurrence: US)
  Receive Date: 20220607
  Receipt Date: 20220613
  Transmission Date: 20220720
  Serious: Yes (Death, Other)
  Sender: FDA-Public Use
  Company Number: US-AMGEN-USASP2022094971

PATIENT

DRUGS (5)
  1. FILGRASTIM [Suspect]
     Active Substance: FILGRASTIM
     Indication: Prophylaxis
     Dosage: 5 MICROGRAM/KILOGRAM, QD, PER DOSE WAS STARTED ON DAY 6 UNTIL NEUTROPHIL RECOVERY
     Route: 065
  2. CISPLATIN [Concomitant]
     Active Substance: CISPLATIN
     Dosage: 50 MILLIGRAM/SQ. METER (1-2 DAYS)
  3. ETOPOSIDE [Concomitant]
     Active Substance: ETOPOSIDE
     Dosage: 100 MILLIGRAM/SQ. METER PER DOSE ( 1-3 DAYS)
  4. DOXORUBICIN [Concomitant]
     Active Substance: DOXORUBICIN
     Dosage: 25 MILLIGRAM/SQ. METER PER DOSE (4-5 DAYS)
  5. MITOTANE [Concomitant]
     Active Substance: MITOTANE
     Dosage: UNK, QD

REACTIONS (70)
  - Death [Fatal]
  - Adrenocortical carcinoma [Fatal]
  - B precursor type acute leukaemia [Fatal]
  - Abdominal infection [Unknown]
  - Enterocolitis infectious [Unknown]
  - Infection [Unknown]
  - Infestation [Unknown]
  - Pneumonia [Unknown]
  - Pharyngitis [Unknown]
  - Skin infection [Unknown]
  - Wound infection [Unknown]
  - Abdominal pain [Unknown]
  - Colitis [Unknown]
  - Oesophagitis [Unknown]
  - Gastrointestinal disorder [Unknown]
  - Stomatitis [Unknown]
  - Obstruction gastric [Unknown]
  - Acidosis [Unknown]
  - Dehydration [Unknown]
  - Hyperglycaemia [Unknown]
  - Hyperkalaemia [Unknown]
  - Hypocalcaemia [Unknown]
  - Hypoglycaemia [Unknown]
  - Hypokalaemia [Unknown]
  - Hypomagnesaemia [Unknown]
  - Hyponatraemia [Unknown]
  - Hypophosphataemia [Unknown]
  - Activated partial thromboplastin time prolonged [Unknown]
  - Blood bilirubin increased [Unknown]
  - International normalised ratio increased [Unknown]
  - Lymphocyte count decreased [Unknown]
  - Neutrophil count decreased [Unknown]
  - White blood cell count decreased [Unknown]
  - Adrenal insufficiency [Unknown]
  - Febrile neutropenia [Unknown]
  - Cardiac disorder [Unknown]
  - Cardiac failure [Unknown]
  - Left ventricular dysfunction [Unknown]
  - Ventricular arrhythmia [Unknown]
  - Confusional state [Unknown]
  - Depressed level of consciousness [Unknown]
  - Peripheral motor neuropathy [Unknown]
  - Peripheral sensory neuropathy [Unknown]
  - Pneumonitis [Unknown]
  - Muscular weakness [Unknown]
  - Hypoacusis [Unknown]
  - Premature menopause [Unknown]
  - Alanine aminotransferase increased [Unknown]
  - Vascular access complication [Unknown]
  - Device related infection [Unknown]
  - Aspartate aminotransferase increased [Unknown]
  - Gamma-glutamyltransferase increased [Unknown]
  - Hypoxia [Unknown]
  - Hypotension [Unknown]
  - Pain [Unknown]
  - Sepsis [Unknown]
  - Urinary tract infection [Unknown]
  - Hypersensitivity [Unknown]
  - Upper respiratory tract infection [Unknown]
  - Nausea [Unknown]
  - Diarrhoea [Unknown]
  - Vomiting [Unknown]
  - Decreased appetite [Unknown]
  - Platelet count decreased [Unknown]
  - Anaemia [Unknown]
  - Dyspnoea [Unknown]
  - Oropharyngeal pain [Unknown]
  - Hypertension [Unknown]
  - Rash maculo-papular [Unknown]
  - Pyrexia [Unknown]
